FAERS Safety Report 4647484-1 (Version None)
Quarter: 2005Q3

REPORT INFORMATION
  Report Type: 
  Country: None (occurrence: None)
  Receive Date: 20050428
  Receipt Date: 20050428
  Transmission Date: 20060218
  Serious: Yes (Hospitalization)
  Sender: FDA-Public Use
  Company Number: None

PATIENT
  Age: 14 Year
  Sex: Female

DRUGS (3)
  1. OXACILLIN [Suspect]
     Dates: start: 20040623, end: 20040713
  2. VANCOMYCIN [Concomitant]
  3. NAFCILLIN SODIUM [Concomitant]

REACTIONS (3)
  - ANOREXIA [None]
  - HEPATIC TRAUMA [None]
  - HEPATITIS [None]
